FAERS Safety Report 6730252-4 (Version None)
Quarter: 2010Q2

REPORT INFORMATION
  Report Type: 
  Country: None (occurrence: None)
  Receive Date: 20100518
  Receipt Date: 20100506
  Transmission Date: 20101027
  Serious: Yes (Other)
  Sender: FDA-Public Use
  Company Number: US-JNJFOC-20100503716

PATIENT
  Age: 85 Year
  Sex: Female
  Weight: 68.04 kg

DRUGS (12)
  1. TYLENOL (CAPLET) [Suspect]
     Route: 048
  2. TYLENOL (CAPLET) [Suspect]
     Indication: ARTHRITIS
     Dosage: 1 TO 2 DOSES 1 TO 2 TIMES PER DAY
     Route: 048
  3. COUMADIN [Concomitant]
     Indication: ANTICOAGULANT THERAPY
     Dosage: 3 DAYS
  4. COUMADIN [Concomitant]
     Dosage: 4 DAYS
  5. BENICAR [Concomitant]
     Indication: HYPERTENSION
  6. KLOR-CON [Concomitant]
     Indication: DRUG USE FOR UNKNOWN INDICATION
  7. LASIX [Concomitant]
     Indication: FLUID RETENTION
  8. SYNTHROID [Concomitant]
     Indication: THYROID DISORDER
  9. LIPITOR [Concomitant]
     Indication: BLOOD CHOLESTEROL
  10. COREG [Concomitant]
     Indication: HYPERTENSION
  11. DIGOXIN [Concomitant]
     Indication: HYPERTENSION
  12. EXTRA STRENGTH TYLENOL [Concomitant]
     Indication: PAIN

REACTIONS (5)
  - ABDOMINAL DISCOMFORT [None]
  - BRONCHITIS BACTERIAL [None]
  - DIARRHOEA [None]
  - PNEUMONIA [None]
  - PRODUCT QUALITY ISSUE [None]
